FAERS Safety Report 9988006 (Version 2)
Quarter: 2014Q2

REPORT INFORMATION
  Report Type: Spontaneous
  Country: US (occurrence: US)
  Receive Date: 20140307
  Receipt Date: 20140415
  Transmission Date: 20141212
  Serious: Yes (Hospitalization, Other)
  Sender: FDA-Public Use
  Company Number: US-PFIZER INC-2014067176

PATIENT
  Age: 85 Year
  Sex: Female

DRUGS (2)
  1. CELEBREX [Suspect]
     Indication: ARTHRITIS
     Dosage: UNK
     Dates: start: 2014
  2. BABY ASPIRIN [Suspect]
     Dosage: 2 DF, UNK

REACTIONS (3)
  - Gastrointestinal haemorrhage [Recovered/Resolved]
  - Large intestinal haemorrhage [Recovered/Resolved]
  - Haemorrhage [Recovered/Resolved]
